FAERS Safety Report 11179478 (Version 1)
Quarter: 2015Q2

REPORT INFORMATION
  Report Type: Report from Study
  Country: US (occurrence: US)
  Receive Date: 20150611
  Receipt Date: 20150611
  Transmission Date: 20150821
  Serious: Yes (Death, Life-Threatening, Other)
  Sender: FDA-Public Use
  Company Number: US-ROCHE-1561802

PATIENT

DRUGS (1)
  1. RITUXIMAB [Suspect]
     Active Substance: RITUXIMAB
     Indication: PROPHYLAXIS AGAINST TRANSPLANT REJECTION
     Route: 065

REACTIONS (7)
  - Atrial fibrillation [Recovered/Resolved]
  - Acute kidney injury [Not Recovered/Not Resolved]
  - Arterial haemorrhage [Recovered/Resolved]
  - Haemodynamic instability [Fatal]
  - Compartment syndrome [Recovered/Resolved]
  - Pneumonia [Recovered/Resolved]
  - Ileus [Not Recovered/Not Resolved]

NARRATIVE: CASE EVENT DATE: 20140731
